FAERS Safety Report 9745761 (Version 2)
Quarter: 2013Q4

REPORT INFORMATION
  Report Type: Spontaneous
  Country: US (occurrence: US)
  Receive Date: 20131211
  Receipt Date: 20131211
  Transmission Date: 20140711
  Serious: Yes (Other)
  Sender: FDA-Public Use
  Company Number: PHHY2013US119319

PATIENT
  Sex: Female

DRUGS (4)
  1. LIORESAL INTRATECAL [Suspect]
     Indication: MUSCLE SPASTICITY
     Dosage: 150 UG, DAILY
     Route: 037
     Dates: start: 20120816
  2. CITALOPRAM [Suspect]
     Dosage: UNK UKN, UNK
  3. SULFAMETHOXAZOLE TABLETS USP [Suspect]
     Dosage: UNK UKN, UNK
  4. COLECALCIFEROL [Suspect]
     Dosage: UNK UKN, UNK

REACTIONS (2)
  - Muscle spasticity [Unknown]
  - Therapeutic response decreased [Unknown]
